FAERS Safety Report 12604083 (Version 1)
Quarter: 2016Q3

REPORT INFORMATION
  Report Type: Spontaneous
  Country: CA (occurrence: CA)
  Receive Date: 20160728
  Receipt Date: 20160728
  Transmission Date: 20161109
  Serious: No
  Sender: FDA-Public Use
  Company Number: CA-JAZZ-2016-CA-003033

PATIENT
  Sex: Female

DRUGS (2)
  1. XYREM [Suspect]
     Active Substance: SODIUM OXYBATE
     Dosage: 2.25 G, BID
     Route: 048
  2. XYREM [Suspect]
     Active Substance: SODIUM OXYBATE
     Indication: EHLERS-DANLOS SYNDROME
     Dosage: 2.25 G, BID
     Route: 048
     Dates: start: 200711, end: 2010

REACTIONS (1)
  - Off label use [Unknown]
